FAERS Safety Report 16651421 (Version 1)
Quarter: 2019Q3

REPORT INFORMATION
  Report Type: Spontaneous
  Country: US (occurrence: US)
  Receive Date: 20190731
  Receipt Date: 20190731
  Transmission Date: 20191004
  Serious: No
  Sender: FDA-Public Use
  Company Number: US-SHIRE-US201924045

PATIENT
  Age: 76 Year
  Sex: Male
  Weight: 96.15 kg

DRUGS (1)
  1. MOTEGRITY [Suspect]
     Active Substance: PRUCALOPRIDE SUCCINATE
     Indication: IRRITABLE BOWEL SYNDROME
     Dosage: UNK, 1X/DAY:QD
     Route: 048
     Dates: start: 20190719, end: 20190719

REACTIONS (1)
  - Feeling abnormal [Recovering/Resolving]

NARRATIVE: CASE EVENT DATE: 20190719
